FAERS Safety Report 7082590-6 (Version None)
Quarter: 2010Q4

REPORT INFORMATION
  Report Type: 
  Country: None (occurrence: None)
  Receive Date: 20101104
  Receipt Date: 20101026
  Transmission Date: 20110411
  Serious: Yes (Death, Hospitalization, Disabling, Other)
  Sender: FDA-Public Use
  Company Number: US-CELGENEUS-163-21880-10060598

PATIENT
  Sex: Male
  Weight: 49.94 kg

DRUGS (35)
  1. REVLIMID [Suspect]
     Indication: MULTIPLE MYELOMA
     Route: 048
     Dates: start: 20100122
  2. REVLIMID [Suspect]
     Route: 048
     Dates: start: 20100301, end: 20100601
  3. THALOMID [Suspect]
     Indication: MULTIPLE MYELOMA
     Route: 048
     Dates: start: 20100607
  4. OS-CAL [Concomitant]
     Route: 048
     Dates: start: 20100624
  5. OMEPRAZOLE [Concomitant]
     Route: 048
  6. FENTANYL [Concomitant]
     Indication: PAIN
     Route: 062
  7. FENTANYL [Concomitant]
     Indication: DYSPEPSIA
  8. NICOTINE [Concomitant]
     Dosage: 1
     Route: 062
  9. MORPHINE SULFATE [Concomitant]
     Route: 048
     Dates: start: 20100727
  10. MORPHINE [Concomitant]
     Route: 048
  11. MORPHINE [Concomitant]
     Route: 048
     Dates: start: 20100709
  12. MORPHINE [Concomitant]
     Route: 048
     Dates: start: 20100628
  13. MORPHINE [Concomitant]
     Route: 048
     Dates: start: 20100628
  14. MORPHINE [Concomitant]
     Route: 048
     Dates: start: 20100427
  15. MORPHINE [Concomitant]
     Route: 048
     Dates: start: 20100427
  16. NORVASC [Concomitant]
     Route: 048
     Dates: start: 20100709
  17. NORVASC [Concomitant]
     Route: 048
     Dates: start: 20100623
  18. SPIRONOLACTONE [Concomitant]
     Route: 048
     Dates: start: 20100625
  19. POTASSIUM CHLORIDE [Concomitant]
     Route: 048
     Dates: start: 20100625
  20. LASIX [Concomitant]
     Route: 048
     Dates: start: 20100624
  21. INDERAL LA [Concomitant]
     Route: 048
     Dates: start: 20100623
  22. INDERAL LA [Concomitant]
     Route: 048
  23. MIRALAX [Concomitant]
     Route: 048
     Dates: start: 20100623
  24. VITAMIN D3 [Concomitant]
     Dosage: 1000 UNITS
     Route: 048
     Dates: start: 20100623
  25. COLACE [Concomitant]
     Route: 048
     Dates: start: 20100623
  26. OYSTER SHELL CALCIUM [Concomitant]
     Route: 048
  27. OYSTER SHELL CALCIUM [Concomitant]
     Route: 048
     Dates: start: 20100623
  28. LORAZEPAM [Concomitant]
     Route: 051
  29. ENOXAPARIN SODIUM [Concomitant]
     Route: 058
  30. VELCADE [Concomitant]
     Route: 065
  31. DEXAMETHASONE [Concomitant]
     Route: 065
  32. CIPRO [Concomitant]
     Route: 048
     Dates: start: 20100623
  33. OXYCODONE HCL [Concomitant]
     Route: 048
     Dates: start: 20100624
  34. OXYCODONE HCL [Concomitant]
     Route: 048
     Dates: start: 20100628
  35. ALLOPURINOL [Concomitant]
     Route: 048
     Dates: start: 20100702

REACTIONS (8)
  - CACHEXIA [None]
  - DEATH [None]
  - DYSPEPSIA [None]
  - GRAND MAL CONVULSION [None]
  - MULTIPLE MYELOMA [None]
  - RENAL FAILURE ACUTE [None]
  - THROMBOCYTOPENIA [None]
  - TUMOUR LYSIS SYNDROME [None]
